FAERS Safety Report 7109756-0 (Version None)
Quarter: 2010Q4

REPORT INFORMATION
  Report Type: 
  Country: None (occurrence: None)
  Receive Date: 20101118
  Receipt Date: 20101112
  Transmission Date: 20110411
  Serious: Yes (Hospitalization)
  Sender: FDA-Public Use
  Company Number: GB-TEVA-255386ISR

PATIENT
  Age: 87 Year
  Sex: Male

DRUGS (3)
  1. NAPROXEN [Suspect]
     Indication: MUSCULOSKELETAL PAIN
     Dates: end: 20101025
  2. ACETYLSALICYLIC ACID SRT [Suspect]
     Indication: ANTIPLATELET THERAPY
     Dates: end: 20101025
  3. ESCITALOPRAM [Suspect]

REACTIONS (1)
  - CEREBRAL HAEMORRHAGE [None]
